FAERS Safety Report 6917327-1 (Version None)
Quarter: 2010Q3

REPORT INFORMATION
  Report Type: 
  Country: None (occurrence: None)
  Receive Date: 20100810
  Receipt Date: 20090213
  Transmission Date: 20110219
  Serious: No
  Sender: FDA-Public Use
  Company Number: US-PFIZER INC-2009170286

PATIENT
  Sex: Female

DRUGS (3)
  1. LIPITOR [Suspect]
     Indication: BLOOD CHOLESTEROL INCREASED
     Dates: start: 20080101, end: 20080624
  2. GLUCOPHAGE [Concomitant]
     Dosage: UNK
  3. LOTENSIN [Concomitant]
     Dosage: UNK

REACTIONS (2)
  - PAIN [None]
  - PAIN IN EXTREMITY [None]
